FAERS Safety Report 8614760-7 (Version None)
Quarter: 2012Q3

REPORT INFORMATION
  Report Type: 
  Country: None (occurrence: None)
  Receive Date: 20120823
  Receipt Date: 20120820
  Transmission Date: 20120928
  Serious: Yes (Other)
  Sender: FDA-Public Use
  Company Number: JP-PFIZER INC-2012202667

PATIENT

DRUGS (1)
  1. LYRICA [Suspect]
     Dosage: 25 MG, 1X/DAY
     Route: 048
     Dates: start: 20120819, end: 20120820

REACTIONS (4)
  - SUBCUTANEOUS HAEMATOMA [None]
  - FALL [None]
  - CONTUSION [None]
  - SYNCOPE [None]
